FAERS Safety Report 25016557 (Version 4)
Quarter: 2025Q2

REPORT INFORMATION
  Report Type: Spontaneous
  Country: US (occurrence: US)
  Receive Date: 20250227
  Receipt Date: 20250512
  Transmission Date: 20250717
  Serious: Yes (Hospitalization, Other)
  Sender: BIOGEN
  Company Number: US-BIOGEN-2025BI01302004

PATIENT
  Age: 48 Year
  Sex: Male
  Weight: 132.9 kg

DRUGS (19)
  1. QALSODY [Suspect]
     Active Substance: TOFERSEN
     Indication: Amyotrophic lateral sclerosis
     Route: 050
     Dates: start: 20250211
  2. QALSODY [Suspect]
     Active Substance: TOFERSEN
     Route: 050
     Dates: start: 20241119
  3. ASPIRIN [Concomitant]
     Active Substance: ASPIRIN
     Indication: Product used for unknown indication
     Route: 050
  4. RADICAVA [Concomitant]
     Active Substance: EDARAVONE
     Indication: Amyotrophic lateral sclerosis
     Route: 050
  5. TRICOR [Concomitant]
     Active Substance: FENOFIBRATE
     Indication: Product used for unknown indication
     Route: 050
  6. GLUCOTROL [Concomitant]
     Active Substance: GLIPIZIDE
     Indication: Product used for unknown indication
     Route: 050
  7. DEXTROSE [Concomitant]
     Active Substance: DEXTROSE MONOHYDRATE
     Indication: Blood glucose decreased
     Route: 050
  8. HYDROURIL [Concomitant]
     Indication: Product used for unknown indication
     Route: 050
  9. INDOCIN [Concomitant]
     Active Substance: INDOMETHACIN
     Indication: Product used for unknown indication
     Route: 050
  10. LANTUS SOLOSTAR [Concomitant]
     Active Substance: INSULIN GLARGINE
     Indication: Diabetes mellitus
     Route: 050
  11. JARDIANCE [Concomitant]
     Active Substance: EMPAGLIFLOZIN
     Indication: Diabetes mellitus
     Route: 050
  12. ZESTRIL [Concomitant]
     Active Substance: LISINOPRIL
     Indication: Product used for unknown indication
     Route: 050
  13. FORTAMET [Concomitant]
     Active Substance: METFORMIN HYDROCHLORIDE
     Indication: Diabetes mellitus
     Route: 050
  14. MOUNJARO [Concomitant]
     Active Substance: TIRZEPATIDE
     Indication: Product used for unknown indication
     Route: 050
  15. METHYLCOBALAMIN [Concomitant]
     Active Substance: METHYLCOBALAMIN
     Indication: Product used for unknown indication
     Route: 050
  16. RILUTEK [Concomitant]
     Active Substance: RILUZOLE
     Indication: Amyotrophic lateral sclerosis
     Route: 050
  17. CRESTOR [Concomitant]
     Active Substance: ROSUVASTATIN CALCIUM
     Indication: Product used for unknown indication
     Route: 050
  18. ZANAFLEX [Concomitant]
     Active Substance: TIZANIDINE HYDROCHLORIDE
     Indication: Product used for unknown indication
     Route: 050
  19. GABAPENTIN [Concomitant]
     Active Substance: GABAPENTIN
     Indication: Headache
     Route: 050

REACTIONS (9)
  - Headache [Unknown]
  - Confusional state [Unknown]
  - Psychotic disorder [Unknown]
  - Meningitis aseptic [Unknown]
  - Loss of consciousness [Unknown]
  - Abnormal behaviour [Unknown]
  - Brain injury [Unknown]
  - Head discomfort [Unknown]
  - Migraine [Unknown]

NARRATIVE: CASE EVENT DATE: 20250201
